FAERS Safety Report 7109683-9 (Version None)
Quarter: 2010Q4

REPORT INFORMATION
  Report Type: 
  Country: None (occurrence: None)
  Receive Date: 20101115
  Receipt Date: 20101115
  Transmission Date: 20110411
  Serious: Yes (Hospitalization)
  Sender: FDA-Public Use
  Company Number: None

PATIENT
  Sex: Female
  Weight: 22.8 kg

DRUGS (6)
  1. DAUNORUBICIN HCL [Suspect]
     Dosage: 50.5 MG
  2. METHOTREXATE [Suspect]
     Dosage: 15 MG
  3. PEG-L- ASPARAGASE (K-H) [Suspect]
     Dosage: 2525 MG
  4. PREDNISONE [Suspect]
     Dosage: 1200 MG
  5. VINCRISTINE SULFATE [Suspect]
     Dosage: 3.04 MG
  6. CYTARABINE [Suspect]
     Dosage: 70 MG

REACTIONS (23)
  - ABDOMINAL PAIN [None]
  - CANDIDA TEST POSITIVE [None]
  - CONDITION AGGRAVATED [None]
  - CONTINUOUS HAEMODIAFILTRATION [None]
  - CONVULSION [None]
  - DISSEMINATED INTRAVASCULAR COAGULATION [None]
  - HEPATIC FAILURE [None]
  - HEPATIC INFARCTION [None]
  - HEPATIC INFECTION [None]
  - HEPATIC LESION [None]
  - HYPOPHAGIA [None]
  - INFREQUENT BOWEL MOVEMENTS [None]
  - KIDNEY INFECTION [None]
  - MEDICAL DEVICE COMPLICATION [None]
  - PLEURAL EFFUSION [None]
  - PSEUDOMONAL SEPSIS [None]
  - RENAL DISORDER [None]
  - RENAL FAILURE ACUTE [None]
  - RESPIRATORY FAILURE [None]
  - SEPTIC SHOCK [None]
  - SPLENIC INFECTION [None]
  - SPLENIC LESION [None]
  - VOMITING [None]
